FAERS Safety Report 26063939 (Version 1)
Quarter: 2025Q4

REPORT INFORMATION
  Report Type: Spontaneous
  Country: US (occurrence: US)
  Receive Date: 20251119
  Receipt Date: 20251119
  Transmission Date: 20260118
  Serious: Yes (Other)
  Sender: DR REDDYS
  Company Number: US-DRL-USA-USA/2025/11/017176

PATIENT
  Age: 27 Year
  Sex: Male

DRUGS (10)
  1. SUNITINIB [Suspect]
     Active Substance: SUNITINIB
     Indication: Vipoma
  2. CARBOPLATIN [Concomitant]
     Active Substance: CARBOPLATIN
     Indication: Vipoma
  3. ETOPOSIDE [Concomitant]
     Active Substance: ETOPOSIDE
     Indication: Vipoma
  4. OCTREOTIDE [Concomitant]
     Active Substance: OCTREOTIDE
     Indication: Vipoma
  5. FLUOROURACIL [Concomitant]
     Active Substance: FLUOROURACIL
     Indication: Vipoma
  6. IRINOTECAN [Concomitant]
     Active Substance: IRINOTECAN
     Indication: Vipoma
  7. IRINOTECAN [Concomitant]
     Active Substance: IRINOTECAN
     Indication: Vipoma
  8. LANREOTIDE [Concomitant]
     Active Substance: LANREOTIDE
     Indication: Vipoma
  9. CAPECITABINE [Concomitant]
     Active Substance: CAPECITABINE
     Indication: Vipoma
  10. TEMOZOLOMIDE [Concomitant]
     Active Substance: TEMOZOLOMIDE
     Indication: Vipoma

REACTIONS (1)
  - Renal impairment [Unknown]
